FAERS Safety Report 19117516 (Version 1)
Quarter: 2021Q2

REPORT INFORMATION
  Report Type: Spontaneous
  Country: US (occurrence: US)
  Receive Date: 20210410
  Receipt Date: 20210410
  Transmission Date: 20210717
  Serious: No
  Sender: FDA-Public Use
  Company Number: US-BRISTOL-MYERS SQUIBB COMPANY-BMS-2021-034732

PATIENT
  Age: 64 Year
  Sex: Male
  Weight: 86.18 kg

DRUGS (2)
  1. ELIQUIS [Suspect]
     Active Substance: APIXABAN
     Indication: DEEP VEIN THROMBOSIS
     Dosage: UNK UNK, BID
     Route: 048
     Dates: start: 2017
  2. REPATHA [Concomitant]
     Active Substance: EVOLOCUMAB
     Indication: BLOOD TRIGLYCERIDES INCREASED
     Dosage: UNK
     Route: 065

REACTIONS (1)
  - Alopecia [Unknown]
